FAERS Safety Report 6392193-4 (Version None)
Quarter: 2009Q4

REPORT INFORMATION
  Report Type: 
  Country: None (occurrence: None)
  Receive Date: 20091007
  Receipt Date: 20070531
  Transmission Date: 20100525
  Serious: Yes (Hospitalization)
  Sender: FDA-Public Use
  Company Number: FR-PFIZER INC-2009266497

PATIENT
  Age: 54 Year

DRUGS (10)
  1. EPIRUBICIN HCL [Suspect]
     Indication: GASTRIC CANCER
     Dosage: 280 MG
     Route: 042
     Dates: start: 20060502
  2. EPIRUBICIN HCL [Suspect]
     Dosage: 228 MG
     Route: 042
     Dates: start: 20060705
  3. EPIRUBICIN HCL [Suspect]
     Dosage: 76 MG
     Route: 042
     Dates: start: 20060816
  4. CISPLATIN [Suspect]
     Indication: GASTRIC CANCER
     Dosage: 272 MG
     Route: 042
     Dates: start: 20060502
  5. CISPLATIN [Suspect]
     Dosage: 270 MG
     Route: 042
     Dates: start: 20060705
  6. CISPLATIN [Suspect]
     Dosage: 90 MG
     Route: 042
     Dates: start: 20060816
  7. XELODA [Suspect]
     Indication: GASTRIC CANCER
     Dosage: 140000 MG
     Route: 048
     Dates: start: 20060502
  8. XELODA [Suspect]
     Dosage: 126000 MG
     Route: 048
     Dates: start: 20060705
  9. XELODA [Suspect]
     Dosage: UNK
     Dates: start: 20060817, end: 20060830
  10. SKENAN [Concomitant]
     Dosage: 60 MG, 1X/DAY

REACTIONS (3)
  - GENERAL PHYSICAL HEALTH DETERIORATION [None]
  - PYREXIA [None]
  - SEPSIS [None]
